FAERS Safety Report 12723514 (Version 7)
Quarter: 2020Q2

REPORT INFORMATION
  Report Type: Spontaneous
  Country: US (occurrence: US)
  Receive Date: 20160908
  Receipt Date: 20200528
  Transmission Date: 20200713
  Serious: Yes (Hospitalization, Other)
  Sender: FDA-Public Use
  Company Number: US-PFIZER INC-2016421396

PATIENT
  Age: 79 Year
  Sex: Female
  Weight: 59 kg

DRUGS (3)
  1. XELJANZ [Suspect]
     Active Substance: TOFACITINIB CITRATE
     Indication: RHEUMATOID ARTHRITIS
     Dosage: 5 MG, 2X/DAY
     Route: 048
     Dates: start: 2015
  2. XELJANZ [Suspect]
     Active Substance: TOFACITINIB CITRATE
     Dosage: 5 MG, 1X/DAY
     Route: 048
     Dates: start: 201407
  3. XELJANZ [Suspect]
     Active Substance: TOFACITINIB CITRATE
     Dosage: 5 MG, 2X/DAY
     Route: 048

REACTIONS (13)
  - Fall [Unknown]
  - Malaise [Recovered/Resolved]
  - Hypersensitivity [Unknown]
  - Product use issue [Unknown]
  - Limb injury [Recovering/Resolving]
  - Dysphonia [Unknown]
  - Body height decreased [Unknown]
  - Weight fluctuation [Unknown]
  - Skin atrophy [Recovering/Resolving]
  - Osteoporosis [Unknown]
  - Spinal fracture [Recovered/Resolved]
  - Pelvic fracture [Recovering/Resolving]
  - Off label use [Unknown]

NARRATIVE: CASE EVENT DATE: 201407
